FAERS Safety Report 10231165 (Version 1)
Quarter: 2014Q2

REPORT INFORMATION
  Report Type: Spontaneous
  Country: US (occurrence: US)
  Receive Date: 20140611
  Receipt Date: 20140611
  Transmission Date: 20141212
  Serious: No
  Sender: FDA-Public Use
  Company Number: US-PFIZER INC-2014159359

PATIENT
  Age: 56 Year
  Sex: Female
  Weight: 96.15 kg

DRUGS (7)
  1. EFFEXOR XR [Suspect]
     Indication: DEPRESSION
     Dosage: 150 MG, 1X/DAY
     Route: 048
  2. EFFEXOR XR [Suspect]
     Indication: ANXIETY
  3. ZOCOR [Concomitant]
     Indication: BLOOD CHOLESTEROL INCREASED
     Dosage: 80 MG, 1X/DAY AT BEDRIME
  4. NUVIGIL [Concomitant]
     Indication: NARCOLEPSY
     Dosage: 250 MG, 1X/DAY IN THE MORNING
  5. LEVOTHROID [Concomitant]
     Indication: HYPOTHYROIDISM
     Dosage: 88 UG, 1X/DAY
  6. VOLTAREN [Concomitant]
     Indication: ARTHRALGIA
     Dosage: UNK, 4X/DAY
     Route: 061
  7. FLUTICASONE [Concomitant]
     Indication: HYPERSENSITIVITY
     Dosage: 50 UG, 2X/DAY
     Route: 045

REACTIONS (6)
  - Paraesthesia [Not Recovered/Not Resolved]
  - Pain in extremity [Not Recovered/Not Resolved]
  - Pruritus [Not Recovered/Not Resolved]
  - Fatigue [Not Recovered/Not Resolved]
  - Somnolence [Not Recovered/Not Resolved]
  - Blood cholesterol increased [Not Recovered/Not Resolved]
